FAERS Safety Report 7248436 (Version 2)
Quarter: 2013Q1

REPORT INFORMATION
  Report Type: Report from Study
  Country: US (occurrence: US)
  Receive Date: 20100118
  Receipt Date: 20130305
  Transmission Date: 20140127
  Serious: Yes (Hospitalization)
  Sender: FDA-Public Use
  Company Number: PHHO2010US00615

PATIENT
  Age: 60 Year
  Sex: Male

DRUGS (1)
  1. ZORTRESS [Suspect]
     Indication: ORGAN TRANSPLANT
     Dosage: 1 MG, UNK
     Route: 048
     Dates: start: 20071105

REACTIONS (5)
  - Coronary artery disease [Unknown]
  - Chest pain [Recovered/Resolved]
  - Coronary artery restenosis [Unknown]
  - Left ventricular dysfunction [Unknown]
  - Pyrexia [Unknown]
